FAERS Safety Report 24357846 (Version 7)
Quarter: 2024Q4

REPORT INFORMATION
  Report Type: Spontaneous
  Country: US (occurrence: US)
  Receive Date: 20240924
  Receipt Date: 20241230
  Transmission Date: 20250115
  Serious: Yes (Hospitalization)
  Sender: ROCHE
  Company Number: US-ROCHE-10000088505

PATIENT
  Age: 69 Year
  Sex: Female

DRUGS (10)
  1. VABYSMO [Suspect]
     Active Substance: FARICIMAB-SVOA
     Indication: Retinal artery occlusion
     Dosage: IN EACH EYE
     Route: 050
  2. AVASTIN [Suspect]
     Active Substance: BEVACIZUMAB
     Indication: Retinal artery occlusion
     Route: 065
  3. EYLEA [Concomitant]
     Active Substance: AFLIBERCEPT
     Dosage: IN BOTH EYE FOR APPROXIMATELY 2 YEARS
  4. FAMOTIDINE [Concomitant]
     Active Substance: FAMOTIDINE
  5. TRELEGY ELLIPTA [Concomitant]
     Active Substance: FLUTICASONE FUROATE\UMECLIDINIUM BROMIDE\VILANTEROL TRIFENATATE
     Dosage: INHALER
  6. VITAMIN D3 [Concomitant]
     Active Substance: CHOLECALCIFEROL
  7. CYMBALTA [Concomitant]
     Active Substance: DULOXETINE HYDROCHLORIDE
  8. LEVOTHROID [Concomitant]
     Active Substance: LEVOTHYROXINE SODIUM
  9. BUSPIRONE [Concomitant]
     Active Substance: BUSPIRONE HYDROCHLORIDE
  10. MELATONIN [Concomitant]
     Active Substance: MELATONIN

REACTIONS (21)
  - Retinal vasculitis [Not Recovered/Not Resolved]
  - Endophthalmitis [Unknown]
  - Eye inflammation [Unknown]
  - Macular degeneration [Unknown]
  - Blindness unilateral [Unknown]
  - Vitreous floaters [Unknown]
  - Visual impairment [Unknown]
  - Off label use [Unknown]
  - Headache [Unknown]
  - Blood urea increased [Unknown]
  - Anion gap decreased [Unknown]
  - Aspartate aminotransferase decreased [Unknown]
  - Alanine aminotransferase decreased [Unknown]
  - Glomerular filtration rate decreased [Unknown]
  - Anxiety [Unknown]
  - Mean cell haemoglobin concentration decreased [Unknown]
  - Lymphocyte count decreased [Unknown]
  - Eosinophil count increased [Unknown]
  - Haematocrit increased [Unknown]
  - Mean cell volume increased [Unknown]
  - Lymphocyte count decreased [Unknown]

NARRATIVE: CASE EVENT DATE: 20240909
